FAERS Safety Report 5806629-8 (Version None)
Quarter: 2008Q3

REPORT INFORMATION
  Report Type: 
  Country: None (occurrence: None)
  Receive Date: 20080710
  Receipt Date: 20080703
  Transmission Date: 20090109
  Serious: Yes (Death, Hospitalization, Other)
  Sender: FDA-Public Use
  Company Number: PHHY2008BR12843

PATIENT
  Age: 35 Year
  Sex: Male

DRUGS (6)
  1. GLEEVEC [Suspect]
     Indication: GASTROINTESTINAL STROMAL TUMOUR
     Dosage: 800 MG, QD
     Dates: start: 20070801
  2. GLEEVEC [Suspect]
     Dosage: 800 MG, QD
     Dates: start: 20060701, end: 20070607
  3. GLEEVEC [Suspect]
     Dosage: 600 MG, Q96H
     Route: 048
     Dates: start: 20050601, end: 20060701
  4. GLEEVEC [Suspect]
     Dosage: 400 MG, QD
     Route: 048
     Dates: start: 20011201, end: 20050601
  5. EVEROLIMUS [Suspect]
     Indication: GASTROINTESTINAL STROMAL TUMOUR
     Dosage: 5 MG, QD
     Route: 048
     Dates: start: 20070801
  6. SUNITINIB [Concomitant]
     Indication: GASTROINTESTINAL STROMAL TUMOUR
     Dosage: UNK
     Route: 048
     Dates: start: 20070601, end: 20070801

REACTIONS (5)
  - GASTROINTESTINAL HAEMORRHAGE [None]
  - MALIGNANT NEOPLASM PROGRESSION [None]
  - METASTASES TO LIVER [None]
  - SURGERY [None]
  - UPPER GASTROINTESTINAL HAEMORRHAGE [None]
